FAERS Safety Report 7598412-0 (Version None)
Quarter: 2011Q3

REPORT INFORMATION
  Report Type: 
  Country: None (occurrence: None)
  Receive Date: 20110708
  Receipt Date: 20110630
  Transmission Date: 20111222
  Serious: Yes (Hospitalization, Other)
  Sender: FDA-Public Use
  Company Number: JP-ABBOTT-11P-087-0733969-00

PATIENT
  Sex: Male
  Weight: 47.8 kg

DRUGS (4)
  1. HUMIRA [Suspect]
     Dosage: 80 MG 2ND ADMINISTRATION
  2. HUMIRA [Suspect]
     Indication: CROHN'S DISEASE
     Dosage: (160MG)
     Route: 058
     Dates: start: 20110609, end: 20110609
  3. TPN [Concomitant]
     Indication: CROHN'S DISEASE
     Route: 048
     Dates: start: 20110506
  4. MESALAMINE [Concomitant]
     Indication: CROHN'S DISEASE
     Route: 048
     Dates: start: 20100108

REACTIONS (2)
  - NEUTROPHIL COUNT DECREASED [None]
  - WHITE BLOOD CELL COUNT DECREASED [None]
